FAERS Safety Report 7296564-3 (Version None)
Quarter: 2011Q1

REPORT INFORMATION
  Report Type: 
  Country: None (occurrence: None)
  Receive Date: 20110216
  Receipt Date: 20110204
  Transmission Date: 20110831
  Serious: Yes (Hospitalization, Other)
  Sender: FDA-Public Use
  Company Number: PHHO2009JP04722

PATIENT
  Sex: Male
  Weight: 83 kg

DRUGS (8)
  1. DIOVAN [Concomitant]
     Indication: HYPERTENSION
     Dosage: UNK
     Route: 048
     Dates: start: 20071121
  2. MYDRIN P [Concomitant]
     Dosage: UNK
     Dates: start: 20081217
  3. HYALEIN [Concomitant]
     Indication: CATARACT
     Dosage: UNK
     Dates: start: 20081128
  4. METHYCOBAL [Concomitant]
     Dosage: UNK
     Dates: start: 20061129
  5. HUMALOG [Concomitant]
     Dosage: UNK
     Dates: start: 20080416
  6. ALISKIREN [Suspect]
     Indication: CARDIOVASCULAR DISORDER
     Dosage: DOUBLE BLIND
     Route: 048
     Dates: start: 20090121
  7. HUMALOG [Concomitant]
     Dosage: UNK
     Dates: start: 20080123
  8. LIPITOR [Concomitant]
     Dosage: UNK
     Dates: start: 20041117

REACTIONS (5)
  - MACULOPATHY [None]
  - CONCOMITANT DISEASE PROGRESSION [None]
  - DIABETIC RETINOPATHY [None]
  - HYPERGLYCAEMIA [None]
  - CONDITION AGGRAVATED [None]
